FAERS Safety Report 9343067 (Version 2)
Quarter: 2013Q2

REPORT INFORMATION
  Report Type: Spontaneous
  Country: FR (occurrence: FR)
  Receive Date: 20130611
  Receipt Date: 20130621
  Transmission Date: 20140414
  Serious: Yes (Hospitalization)
  Sender: FDA-Public Use
  Company Number: FR-VERTEX PHARMACEUTICALS INC-000000000000000543

PATIENT
  Age: 64 Year
  Sex: Female
  Weight: 60 kg

DRUGS (12)
  1. INCIVO [Suspect]
     Indication: HEPATITIS C
     Dosage: DOSAGE FORM: TABLET
     Route: 048
     Dates: start: 20120104, end: 20120319
  2. COPEGUS [Suspect]
     Indication: HEPATITIS C
     Dosage: DOSAGE FORM: UNSPECIFIED
     Route: 065
     Dates: start: 20120228, end: 20120319
  3. COPEGUS [Suspect]
     Dosage: DOSAGE FORM: UNSPECIFIED, 400X2+200
     Route: 065
     Dates: start: 20120104, end: 20120226
  4. PEGASYS [Suspect]
     Indication: HEPATITIS C
     Dosage: DOSAGE FORM: UNSPECIFIED
     Route: 065
     Dates: start: 20120104, end: 20120229
  5. PEGASYS [Suspect]
     Dosage: DOSAGE FORM: UNSPECIFIED
     Route: 065
     Dates: start: 20120301, end: 20120319
  6. LANTUS [Concomitant]
     Indication: DIABETES MELLITUS
     Dosage: 14 IU, QD
     Dates: start: 20111210
  7. LANTUS [Concomitant]
     Dosage: 10 IU, QD
     Dates: start: 20120325, end: 20120328
  8. LANTUS [Concomitant]
     Dosage: 12 IU, QD
     Dates: start: 20120328
  9. EUCREAS [Concomitant]
     Indication: DIABETES MELLITUS
     Dosage: 50MG/10000MG
     Dates: start: 2011
  10. LEXOMIL [Concomitant]
     Indication: ANXIETY
     Dosage: 0.25 DF, TID
     Dates: start: 20120324
  11. TAREG [Concomitant]
     Indication: HYPERTENSION
     Dosage: 80 MG, QD
     Dates: start: 20120229, end: 20120319
  12. AMAREL [Concomitant]
     Indication: DIABETES MELLITUS
     Dosage: 1 MG, QD
     Dates: start: 20120324

REACTIONS (3)
  - Hyperthermia [Unknown]
  - Escherichia bacteraemia [Recovered/Resolved]
  - Anaemia [Recovered/Resolved]
